FAERS Safety Report 6100911-5 (Version None)
Quarter: 2009Q1

REPORT INFORMATION
  Report Type: 
  Country: None (occurrence: None)
  Receive Date: 20090223
  Receipt Date: 20090214
  Transmission Date: 20090719
  Serious: Yes (Other)
  Sender: FDA-Public Use
  Company Number: CHPA2009US04515

PATIENT
  Sex: Female

DRUGS (3)
  1. MAALOX ANTACID/ANTIGAS MAX LIQ (NCH) (MAGNESIUM HYDROXIDE, ALUMINIUM H [Suspect]
     Indication: DYSPEPSIA
     Dosage: 3 TSP BEFORE AND AFTER MEALS, ORAL
     Route: 048
  2. MAALOX ANTACID/ANTIGAS MAX LIQ (NCH) (MAGNESIUM HYDROXIDE, ALUMINIUM H [Suspect]
     Indication: ULCER
     Dosage: 3 TSP BEFORE AND AFTER MEALS, ORAL
     Route: 048
  3. CLINDAMYCIN HCL [Concomitant]

REACTIONS (8)
  - CARDIAC DISORDER [None]
  - CAROTID ARTERY DISEASE [None]
  - GASTROOESOPHAGEAL REFLUX DISEASE [None]
  - HYPERTENSION [None]
  - HYPOTHYROIDISM [None]
  - INTENTIONAL DRUG MISUSE [None]
  - TOOTH ABSCESS [None]
  - URINARY INCONTINENCE [None]
